FAERS Safety Report 7902258-0 (Version None)
Quarter: 2011Q4

REPORT INFORMATION
  Report Type: 
  Country: None (occurrence: None)
  Receive Date: 20111108
  Receipt Date: 20111025
  Transmission Date: 20120403
  Serious: Yes (Other)
  Sender: FDA-Public Use
  Company Number: CA-SANOFI-AVENTIS-2011SA071656

PATIENT
  Age: 19 Year
  Sex: Female

DRUGS (21)
  1. METHYLPREDNISOLONE [Suspect]
     Route: 042
  2. METHYLPREDNISOLONE [Suspect]
     Dosage: DOSE REDUCED
     Route: 042
  3. PREDNISONE [Suspect]
     Route: 048
  4. RITUXIMAB [Concomitant]
     Indication: ANGIOEDEMA
     Dosage: 4 INFUSIONS
     Route: 042
  5. RANITIDINE [Concomitant]
     Indication: PROPHYLAXIS
  6. BUDESONIDE/FORMOTEROL [Concomitant]
     Indication: ASTHMA
  7. METHYLPREDNISOLONE [Suspect]
     Indication: ANGIOEDEMA
     Route: 042
  8. METHYLPREDNISOLONE [Suspect]
     Route: 042
  9. EPINEPHRINE [Concomitant]
     Indication: ANGIOEDEMA
     Dosage: INTRAMUSCULAR, 1-2 INJECTION DAILY
  10. IMMUNE GLOBULIN NOS [Suspect]
     Indication: ANGIOEDEMA
     Route: 042
  11. C1-INAKTIVATOR [Concomitant]
     Indication: ANGIOEDEMA
  12. CETIRIZINE HCL [Concomitant]
     Indication: PROPHYLAXIS
  13. DAPSONE [Concomitant]
     Indication: ANGIOEDEMA
  14. HYDROXYCHLOROQUINE SULFATE [Suspect]
     Indication: ANGIOEDEMA
     Route: 065
  15. METHYLPREDNISOLONE [Suspect]
     Route: 042
  16. PREDNISONE [Suspect]
     Indication: ANGIOEDEMA
     Route: 065
  17. EPINEPHRINE [Concomitant]
     Dosage: MULTIPLE AND HIGHER DOSES
  18. MONTELUKAST SODIUM [Concomitant]
     Indication: ASTHMA
  19. METHYLPREDNISOLONE [Suspect]
     Route: 042
  20. METHYLPREDNISOLONE [Suspect]
     Route: 042
  21. RITUXIMAB [Concomitant]
     Dosage: 3 INFUSION
     Route: 042

REACTIONS (5)
  - HYPERGLYCAEMIA [None]
  - POSTERIOR REVERSIBLE ENCEPHALOPATHY SYNDROME [None]
  - MYOPATHY [None]
  - MOOD ALTERED [None]
  - CONVULSION [None]
